FAERS Safety Report 11654950 (Version 2)
Quarter: 2015Q4

REPORT INFORMATION
  Report Type: Spontaneous
  Country: FR (occurrence: FR)
  Receive Date: 20151023
  Receipt Date: 20151230
  Transmission Date: 20160304
  Serious: Yes (Hospitalization, Other)
  Sender: FDA-Public Use
  Company Number: FR-PFIZER INC-2015354768

PATIENT
  Age: 86 Year
  Sex: Male

DRUGS (7)
  1. CARDENSIEL [Concomitant]
     Active Substance: BISOPROLOL FUMARATE
     Dosage: UNK
  2. XARELTO [Concomitant]
     Active Substance: RIVAROXABAN
     Dosage: UNK
  3. INEXIUM [Concomitant]
     Active Substance: ESOMEPRAZOLE
     Dosage: UNK
  4. XATRAL [Concomitant]
     Active Substance: ALFUZOSIN
     Dosage: UNK
  5. TRIATEC [Suspect]
     Active Substance: RAMIPRIL
     Dosage: 25 MG, DAILY
     Route: 048
  6. LEVOTHYROX [Concomitant]
     Active Substance: LEVOTHYROXINE
     Dosage: UNK
  7. LODALES [Concomitant]
     Active Substance: SIMVASTATIN
     Dosage: UNK

REACTIONS (2)
  - Pancreatitis acute [Recovered/Resolved]
  - Hepatic cirrhosis [Unknown]

NARRATIVE: CASE EVENT DATE: 20150719
